FAERS Safety Report 24435008 (Version 1)
Quarter: 2024Q4

REPORT INFORMATION
  Report Type: Spontaneous
  Country: US (occurrence: US)
  Receive Date: 20241014
  Receipt Date: 20241014
  Transmission Date: 20250115
  Serious: No
  Sender: BIONPHARMA INC.
  Company Number: US-Bion-014062

PATIENT
  Age: 80 Year
  Sex: Female

DRUGS (2)
  1. LOPERAMIDE HYDROCHLORIDE [Suspect]
     Active Substance: LOPERAMIDE HYDROCHLORIDE
     Indication: Diarrhoea
     Dosage: 1 PILL
     Dates: start: 20241003
  2. LOPERAMIDE HYDROCHLORIDE [Suspect]
     Active Substance: LOPERAMIDE HYDROCHLORIDE
     Indication: Gastrointestinal motility disorder
     Dosage: 1 PILL
     Dates: start: 20241003

REACTIONS (1)
  - Inappropriate schedule of product administration [Unknown]
